FAERS Safety Report 4386479-2 (Version None)
Quarter: 2004Q2

REPORT INFORMATION
  Report Type: 
  Country: None (occurrence: None)
  Receive Date: 20040623
  Receipt Date: 20040611
  Transmission Date: 20050107
  Serious: Yes (Other)
  Sender: FDA-Public Use
  Company Number: 200412913BCC

PATIENT
  Sex: Female

DRUGS (1)
  1. MILK OF MAGNESIA TAB [Suspect]
     Indication: CONSTIPATION
     Dosage: ONCE, ORAL
     Route: 048
     Dates: start: 20040610

REACTIONS (2)
  - COMPLICATIONS OF MATERNAL EXPOSURE TO THERAPEUTIC DRUGS [None]
  - VAGINAL HAEMORRHAGE [None]
